FAERS Safety Report 12174751 (Version 1)
Quarter: 2016Q1

REPORT INFORMATION
  Report Type: Spontaneous
  Country: US (occurrence: US)
  Receive Date: 20160314
  Receipt Date: 20160314
  Transmission Date: 20160526
  Serious: No
  Sender: FDA-Public Use
  Company Number: US-009507513-1603USA005937

PATIENT
  Sex: Female

DRUGS (1)
  1. NEXPLANON [Suspect]
     Active Substance: ETONOGESTREL
     Dosage: UNK
     Route: 059
     Dates: start: 20151203

REACTIONS (5)
  - Thrombosis [Unknown]
  - Menstruation irregular [Unknown]
  - Menorrhagia [Unknown]
  - Pelvic pain [Unknown]
  - Fatigue [Unknown]
